FAERS Safety Report 8817874 (Version 1)
Quarter: 2012Q4

REPORT INFORMATION
  Report Type: 
  Country: FR (occurrence: FR)
  Receive Date: 20121004
  Receipt Date: 20121004
  Transmission Date: 20130627
  Serious: Yes (Hospitalization)
  Sender: FDA-Public Use
  Company Number: FR-B.I. PHARMACEUTICALS,INC./RIDGEFIELD-2012-FF-01369FF

PATIENT
  Age: 79 Year
  Sex: Male

DRUGS (9)
  1. PRADAXA [Suspect]
     Indication: ATRIAL FIBRILLATION
     Dosage: 220 mg
     Route: 048
     Dates: start: 20120411, end: 201207
  2. PRAVASTATINE [Concomitant]
     Indication: HYPERCHOLESTEROLAEMIA
  3. RAMIPRIL [Concomitant]
  4. HEMIGOXINE [Concomitant]
     Indication: CARDIAC FAILURE
  5. SPIRIVA [Concomitant]
  6. SERETIDE [Concomitant]
  7. XYZALL [Concomitant]
  8. SEROPLEX [Concomitant]
  9. VESICARE [Concomitant]

REACTIONS (2)
  - Transient ischaemic attack [Recovered/Resolved]
  - Transient ischaemic attack [Recovered/Resolved]
